FAERS Safety Report 18848590 (Version 2)
Quarter: 2021Q1

REPORT INFORMATION
  Report Type: Spontaneous
  Country: US (occurrence: US)
  Receive Date: 20210204
  Receipt Date: 20210301
  Transmission Date: 20210419
  Serious: Yes (Other)
  Sender: FDA-Public Use
  Company Number: US-GLAXOSMITHKLINE-US2021GSK028857

PATIENT
  Sex: Female

DRUGS (4)
  1. ZANTAC [Suspect]
     Active Substance: RANITIDINE HYDROCHLORIDE
     Indication: COLITIS ULCERATIVE
     Dosage: UNKNOWN AT THIS TIME BOTH
     Route: 065
     Dates: start: 198201, end: 202004
  2. ZANTAC [Suspect]
     Active Substance: RANITIDINE HYDROCHLORIDE
     Indication: COLITIS ULCERATIVE
     Dosage: UNKNOWN AT THIS TIME BOTH
     Route: 065
     Dates: start: 198201, end: 202004
  3. RANITIDINE CAPSULE [Suspect]
     Active Substance: RANITIDINE
     Indication: COLITIS ULCERATIVE
     Dosage: UNKNOWN AT THIS TIME BOTH
     Route: 065
     Dates: start: 198201, end: 202004
  4. ZANTAC [Suspect]
     Active Substance: RANITIDINE HYDROCHLORIDE
     Indication: COLITIS ULCERATIVE
     Dosage: UNKNOWN AT THIS TIME BOTH
     Route: 065
     Dates: start: 198201, end: 202004

REACTIONS (1)
  - Breast cancer [Unknown]
